FAERS Safety Report 9689721 (Version 1)
Quarter: 2013Q4

REPORT INFORMATION
  Report Type: Spontaneous
  Country: CH (occurrence: CH)
  Receive Date: 20131115
  Receipt Date: 20131115
  Transmission Date: 20140711
  Serious: Yes (Other)
  Sender: FDA-Public Use
  Company Number: CH-JNJFOC-20131010892

PATIENT
  Sex: 0
  Weight: 2.79 kg

DRUGS (5)
  1. REMICADE [Suspect]
     Indication: CROHN^S DISEASE
     Dosage: MOTHER^S DOSING
     Route: 064
  2. PREDNISONE [Suspect]
     Indication: CROHN^S DISEASE
     Route: 064
  3. PREDNISONE [Suspect]
     Indication: CROHN^S DISEASE
     Route: 064
  4. METHOTREXATE [Suspect]
     Indication: CROHN^S DISEASE
     Route: 064
  5. AZATHIOPRINE [Suspect]
     Indication: CROHN^S DISEASE
     Route: 064

REACTIONS (2)
  - Premature baby [Unknown]
  - Foetal exposure during pregnancy [Recovered/Resolved]
